FAERS Safety Report 6735691-3 (Version None)
Quarter: 2010Q2

REPORT INFORMATION
  Report Type: 
  Country: None (occurrence: None)
  Receive Date: 20100521
  Receipt Date: 20100512
  Transmission Date: 20101027
  Serious: Yes (Other)
  Sender: FDA-Public Use
  Company Number: US-NOVOPROD-308546

PATIENT
  Sex: Female
  Weight: 84.807 kg

DRUGS (6)
  1. LEVEMIR [Suspect]
     Indication: TYPE 2 DIABETES MELLITUS
     Dosage: UNKNOWN
     Route: 058
     Dates: start: 20100401
  2. NOVOLOG MIX 70/30 [Suspect]
     Indication: TYPE 2 DIABETES MELLITUS
     Dosage: UNKNOWN
     Route: 058
     Dates: start: 20081101, end: 20100401
  3. HUMALOG [Concomitant]
     Indication: TYPE 2 DIABETES MELLITUS
     Dosage: UNKNOWN
     Route: 058
     Dates: start: 20100101
  4. AMARYL [Concomitant]
     Indication: TYPE 2 DIABETES MELLITUS
     Dosage: UNKNOWN
     Route: 048
  5. LASIX [Concomitant]
     Indication: MITRAL VALVE STENOSIS
     Dosage: UNKNOWN
     Route: 048
     Dates: end: 20100509
  6. LASIX [Concomitant]
     Dosage: 40 MG, TID
     Route: 048
     Dates: start: 20100509

REACTIONS (2)
  - LOCALISED INTRAABDOMINAL FLUID COLLECTION [None]
  - OEDEMA PERIPHERAL [None]
